FAERS Safety Report 4491346-X (Version None)
Quarter: 2004Q4

REPORT INFORMATION
  Report Type: 
  Country: None (occurrence: None)
  Receive Date: 20041103
  Receipt Date: 20041012
  Transmission Date: 20050328
  Serious: Yes (Hospitalization)
  Sender: FDA-Public Use
  Company Number: GB-BRISTOL-MYERS SQUIBB COMPANY-12732772

PATIENT
  Age: 36 Year
  Sex: Male
  Weight: 61 kg

DRUGS (6)
  1. REYATAZ [Suspect]
     Indication: HIV INFECTION
     Dosage: STOPPED ON 9-10-APR
     Route: 048
     Dates: start: 20030327, end: 20030401
  2. COTRIM [Concomitant]
     Indication: INFECTION PROPHYLAXIS
     Route: 048
     Dates: start: 19950113
  3. VALGANCICLOVIR [Concomitant]
     Indication: CYTOMEGALOVIRUS CHORIORETINITIS
     Route: 048
     Dates: start: 20021107
  4. DOMPERIDONE [Concomitant]
     Indication: VOMITING
     Dosage: OFF AND ON
  5. AZITHROMYCIN [Concomitant]
     Indication: ANTIBACTERIAL PROPHYLAXIS
     Route: 048
     Dates: start: 20021210, end: 20040214
  6. IBUPROFEN [Concomitant]
     Indication: ANALGESIC EFFECT
     Route: 048

REACTIONS (4)
  - CHILLS [None]
  - COUGH [None]
  - PYREXIA [None]
  - RASH MACULO-PAPULAR [None]
